FAERS Safety Report 19358361 (Version 1)
Quarter: 2021Q2

REPORT INFORMATION
  Report Type: Spontaneous
  Country: US (occurrence: US)
  Receive Date: 20210602
  Receipt Date: 20210602
  Transmission Date: 20210717
  Serious: Yes (Hospitalization)
  Sender: FDA-Public Use
  Company Number: None

PATIENT
  Sex: Female

DRUGS (12)
  1. FUROSEMIDE. [Concomitant]
     Active Substance: FUROSEMIDE
  2. TRELEGY ELLIPT [Concomitant]
  3. AMOXICILLIN. [Concomitant]
     Active Substance: AMOXICILLIN
  4. CLOBETASOL [Concomitant]
     Active Substance: CLOBETASOL
  5. IBUPROFEN. [Concomitant]
     Active Substance: IBUPROFEN
  6. APAP/CODEINE [Concomitant]
     Active Substance: ACETAMINOPHEN\CODEINE PHOSPHATE
  7. CLINDAMYCIN. [Concomitant]
     Active Substance: CLINDAMYCIN
  8. FEROSUL [Concomitant]
     Active Substance: FERROUS SULFATE
  9. POT CL MICRO ER [Concomitant]
  10. DEXAMETHASONE. [Concomitant]
     Active Substance: DEXAMETHASONE
  11. VITAMIN D [Concomitant]
     Active Substance: VITAMIN D NOS
  12. SILDENAFIL 20MG TAB [Suspect]
     Active Substance: SILDENAFIL
     Indication: PULMONARY HYPERTENSION
     Route: 048
     Dates: start: 20200304

REACTIONS (1)
  - Fluid retention [None]
